FAERS Safety Report 5479022-8 (Version None)
Quarter: 2007Q4

REPORT INFORMATION
  Report Type: 
  Country: None (occurrence: None)
  Receive Date: 20071006
  Receipt Date: 20070925
  Transmission Date: 20080405
  Serious: Yes (Other)
  Sender: FDA-Public Use
  Company Number: PFIZER INC-2007080912

PATIENT
  Sex: Male

DRUGS (1)
  1. GABAPEN [Suspect]
     Indication: EPILEPSY
     Route: 048

REACTIONS (3)
  - AUTOMATISM [None]
  - CONVULSION [None]
  - FALL [None]
